FAERS Safety Report 4300408-9 (Version None)
Quarter: 2004Q1

REPORT INFORMATION
  Report Type: 
  Country: None (occurrence: None)
  Receive Date: 20040218
  Receipt Date: 20040218
  Transmission Date: 20041129
  Serious: Yes (Hospitalization)
  Sender: FDA-Public Use
  Company Number: None

PATIENT
  Age: 64 Year
  Sex: Male
  Weight: 99.7 kg

DRUGS (9)
  1. ASPIRIN [Suspect]
     Dosage: 81 MG
  2. PREDNISONE [Suspect]
     Dosage: TAPER DOSE
  3. AZITHROMYCIN [Concomitant]
  4. FUROSEMIDE [Concomitant]
  5. NAPROXEN [Concomitant]
  6. POTASSIUM CHLORIDE [Concomitant]
  7. PROPRANOLOL [Concomitant]
  8. SERTRALINE HCL [Concomitant]
  9. SPIRONOLACTONE [Concomitant]

REACTIONS (4)
  - DIZZINESS [None]
  - FAECES DISCOLOURED [None]
  - HAEMATEMESIS [None]
  - MELAENA [None]
